FAERS Safety Report 7251735-7 (Version None)
Quarter: 2011Q1

REPORT INFORMATION
  Report Type: 
  Country: None (occurrence: None)
  Receive Date: 20110128
  Receipt Date: 20110118
  Transmission Date: 20110831
  Serious: Yes (Disabling, Other)
  Sender: FDA-Public Use
  Company Number: US-MERCK-0904USA02016

PATIENT
  Age: 59 Year
  Sex: Female

DRUGS (6)
  1. FOSAMAX [Suspect]
     Route: 048
  2. FOSAMAX [Suspect]
     Route: 048
     Dates: start: 20041005, end: 20060201
  3. ZOLOFT [Concomitant]
     Indication: INSOMNIA
     Route: 065
     Dates: start: 19950101
  4. ZOLOFT [Concomitant]
     Indication: NERVOUSNESS
     Route: 065
     Dates: start: 19950101
  5. VIOXX [Concomitant]
     Indication: RHEUMATOID ARTHRITIS
     Route: 065
     Dates: start: 19950101, end: 20010101
  6. FOSAMAX [Suspect]
     Indication: OSTEOPOROSIS
     Route: 048
     Dates: start: 20010712, end: 20040101

REACTIONS (30)
  - BONE DENSITY DECREASED [None]
  - DEVICE FAILURE [None]
  - NODULE [None]
  - ORAL INFECTION [None]
  - ACROCHORDON [None]
  - OSTEONECROSIS OF JAW [None]
  - ARTHRALGIA [None]
  - INSOMNIA [None]
  - DEVICE RELATED INFECTION [None]
  - OSTEOARTHRITIS [None]
  - TOOTH DISORDER [None]
  - OEDEMA MOUTH [None]
  - RESPIRATORY TRACT INFECTION [None]
  - PULPITIS DENTAL [None]
  - LOOSE TOOTH [None]
  - HAND FRACTURE [None]
  - JAW DISORDER [None]
  - BRONCHITIS [None]
  - PAIN [None]
  - ORAL PAIN [None]
  - GLAUCOMA [None]
  - DYSPEPSIA [None]
  - OSTEOMYELITIS [None]
  - GINGIVAL DISORDER [None]
  - PERIODONTAL DISEASE [None]
  - CHRONIC OBSTRUCTIVE PULMONARY DISEASE [None]
  - TOOTHACHE [None]
  - TEMPOROMANDIBULAR JOINT SYNDROME [None]
  - MUSCULOSKELETAL PAIN [None]
  - IMPAIRED HEALING [None]
